FAERS Safety Report 5256809-8 (Version None)
Quarter: 2007Q1

REPORT INFORMATION
  Report Type: 
  Country: None (occurrence: None)
  Receive Date: 20070306
  Receipt Date: 20070301
  Transmission Date: 20070707
  Serious: Yes (Life-Threatening, Hospitalization)
  Sender: FDA-Public Use
  Company Number: DE-BOEHRINGER INGELHEIM PHARMACEUTICALS, INC.-2007-DE-01233GD

PATIENT
  Age: 68 Year
  Sex: Male

DRUGS (4)
  1. PRAMIPEXOLE DIHYDROCHLORIDE [Suspect]
     Indication: PARKINSON'S DISEASE
  2. AMANTADINE HCL [Suspect]
     Indication: PARKINSON'S DISEASE
  3. L-DOPA [Suspect]
     Indication: PARKINSON'S DISEASE
  4. ENTACAPONE [Suspect]
     Indication: PARKINSON'S DISEASE

REACTIONS (1)
  - PSYCHOTIC DISORDER [None]
